FAERS Safety Report 7238749-8 (Version None)
Quarter: 2011Q1

REPORT INFORMATION
  Report Type: 
  Country: None (occurrence: None)
  Receive Date: 20110121
  Receipt Date: 20110117
  Transmission Date: 20110831
  Serious: Yes (Death, Life-Threatening)
  Sender: FDA-Public Use
  Company Number: FR-JNJFOC-20101001985

PATIENT
  Sex: Female

DRUGS (4)
  1. RISPERDAL [Suspect]
     Indication: ILL-DEFINED DISORDER
     Route: 042
  2. TERCIAN [Suspect]
     Indication: ILL-DEFINED DISORDER
     Dosage: DOSE : 50 MG/ 5 ML
     Route: 042
  3. CITALOPRAM [Suspect]
     Indication: ILL-DEFINED DISORDER
     Route: 048
  4. TEMESTA [Concomitant]
     Indication: ILL-DEFINED DISORDER
     Route: 048

REACTIONS (17)
  - STATUS EPILEPTICUS [None]
  - CLONUS [None]
  - RENAL FAILURE ACUTE [None]
  - SEPTIC SHOCK [None]
  - HYPERKALAEMIA [None]
  - HEPATIC FAILURE [None]
  - INCORRECT ROUTE OF DRUG ADMINISTRATION [None]
  - MULTI-ORGAN FAILURE [None]
  - CYTOLYTIC HEPATITIS [None]
  - ACUTE RESPIRATORY DISTRESS SYNDROME [None]
  - HYPERTRIGLYCERIDAEMIA [None]
  - NEUROLEPTIC MALIGNANT SYNDROME [None]
  - MUTISM [None]
  - CONVULSION [None]
  - ENCEPHALITIS [None]
  - CARDIAC FAILURE [None]
  - GASTROINTESTINAL OBSTRUCTION [None]
